FAERS Safety Report 10516739 (Version 2)
Quarter: 2014Q4

REPORT INFORMATION
  Report Type: Report from Study
  Country: DE (occurrence: DE)
  Receive Date: 20141014
  Receipt Date: 20141014
  Transmission Date: 20150528
  Serious: Yes (Other)
  Sender: FDA-Public Use
  Company Number: DE-ELI_LILLY_AND_COMPANY-DE201310002301

PATIENT
  Age: 63 Year
  Sex: Male

DRUGS (4)
  1. DEKRISTOL [Concomitant]
     Active Substance: CHOLECALCIFEROL
     Dosage: UNK, WEEKLY (1/W)
  2. TERIPARATIDE [Suspect]
     Active Substance: TERIPARATIDE
     Indication: OSTEOPOROSIS
     Dosage: UNK, QD
     Route: 058
     Dates: start: 20130712
  3. VITAMIN D [Concomitant]
     Active Substance: CHOLECALCIFEROL
     Route: 065
  4. PANTOPRAZOLE [Concomitant]
     Active Substance: PANTOPRAZOLE SODIUM
     Route: 065

REACTIONS (14)
  - Incontinence [Unknown]
  - Headache [Recovered/Resolved]
  - Blood pressure decreased [Not Recovered/Not Resolved]
  - Loss of consciousness [Recovered/Resolved]
  - Drug hypersensitivity [Not Recovered/Not Resolved]
  - Pollakiuria [Unknown]
  - Gastrooesophageal reflux disease [Unknown]
  - Neuralgia [Unknown]
  - Blood uric acid increased [Unknown]
  - Dizziness [Unknown]
  - Blood pressure fluctuation [Recovered/Resolved]
  - Peripheral vascular disorder [Recovered/Resolved]
  - Overdose [Recovered/Resolved]
  - Hypersensitivity [Recovered/Resolved]

NARRATIVE: CASE EVENT DATE: 2013
